FAERS Safety Report 5270810-X (Version None)
Quarter: 2007Q1

REPORT INFORMATION
  Report Type: 
  Country: None (occurrence: None)
  Receive Date: 20070319
  Receipt Date: 20070319
  Transmission Date: 20070707
  Serious: Yes (Life-Threatening, Hospitalization)
  Sender: FDA-Public Use
  Company Number: None

PATIENT
  Age: 57 Year
  Sex: Male
  Weight: 130.9 kg

DRUGS (19)
  1. MOXIFLOXACIN HCL [Suspect]
  2. EPOETIN ALFA [Concomitant]
  3. OXYMETAZOLINE [Concomitant]
  4. HUMULIN R [Concomitant]
  5. COUMADIN [Concomitant]
  6. POTASSIUM CHLORIDE [Concomitant]
  7. ASCORBIC ACID [Concomitant]
  8. ZINC SULFATE [Concomitant]
  9. RANITIDINE [Concomitant]
  10. MAGNESIUM HYDROXIDE TAB [Concomitant]
  11. ALLOPURINOL [Concomitant]
  12. PROCHLORPERAZINE [Concomitant]
  13. FUROSEMIDE [Concomitant]
  14. EZETIMIBE [Concomitant]
  15. IMATINIB MESYLATE [Concomitant]
  16. VANCOMYCIN [Concomitant]
  17. FAMOTIDINE [Concomitant]
  18. METRONIDAZOLE [Concomitant]
  19. ONDANSETRON [Concomitant]

REACTIONS (3)
  - DYSPNOEA [None]
  - PRURITUS [None]
  - URTICARIA [None]
